FAERS Safety Report 21569649 (Version 4)
Quarter: 2024Q1

REPORT INFORMATION
  Report Type: Spontaneous
  Country: US (occurrence: US)
  Receive Date: 20221109
  Receipt Date: 20240115
  Transmission Date: 20240410
  Serious: Yes (Hospitalization, Other)
  Sender: FDA-Public Use
  Company Number: US-GSKCCFUS-Case-01547279_AE-87574

PATIENT
  Sex: Female

DRUGS (1)
  1. BENLYSTA [Suspect]
     Active Substance: BELIMUMAB
     Indication: Product used for unknown indication
     Dosage: UNK, 200 MG/ML

REACTIONS (7)
  - Suicide attempt [Unknown]
  - Mental disorder [Unknown]
  - Suicidal ideation [Unknown]
  - Depressed mood [Unknown]
  - Systemic lupus erythematosus [Unknown]
  - Product dose omission issue [Unknown]
  - Product complaint [Unknown]
